FAERS Safety Report 7060249-9 (Version None)
Quarter: 2010Q4

REPORT INFORMATION
  Report Type: 
  Country: None (occurrence: None)
  Receive Date: 20101025
  Receipt Date: 20101021
  Transmission Date: 20110411
  Serious: Yes (Hospitalization)
  Sender: FDA-Public Use
  Company Number: IT-BRISTOL-MYERS SQUIBB COMPANY-15346620

PATIENT
  Age: 54 Year
  Sex: Male
  Weight: 85 kg

DRUGS (6)
  1. CISPLATIN [Suspect]
     Indication: NON-SMALL CELL LUNG CANCER
     Dosage: LAST DOSE ON 28SEP10
     Dates: start: 20100907
  2. GEMZAR [Suspect]
     Indication: NON-SMALL CELL LUNG CANCER
     Dosage: LAST DOSE ON 28SEP10
     Dates: start: 20100907
  3. SALMETEROL [Concomitant]
  4. TIOTROPIUM BROMIDE [Concomitant]
  5. PANTOPRAZOLE [Concomitant]
  6. METHYLPREDNISOLONE SODIUM SUCCINATE [Concomitant]
     Dosage: METILPREDNOSOLONA

REACTIONS (1)
  - ARTERIAL THROMBOSIS LIMB [None]
